FAERS Safety Report 10164625 (Version 2)
Quarter: 2014Q2

REPORT INFORMATION
  Report Type: Spontaneous
  Country: US (occurrence: US)
  Receive Date: 20140510
  Receipt Date: 20140510
  Transmission Date: 20141212
  Serious: No
  Sender: FDA-Public Use
  Company Number: US-BRISTOL-MYERS SQUIBB COMPANY-20124590

PATIENT
  Age: 45 Year
  Sex: Female

DRUGS (6)
  1. BYDUREON [Suspect]
     Indication: TYPE 2 DIABETES MELLITUS
     Route: 058
     Dates: start: 20131118, end: 20140120
  2. ESTRACE [Concomitant]
  3. FLONASE [Concomitant]
  4. LEVOCETIRIZINE [Concomitant]
  5. LEVEMIR [Concomitant]
  6. SINGULAIR [Concomitant]

REACTIONS (1)
  - Hypersensitivity [Recovered/Resolved]
